FAERS Safety Report 4663526-1 (Version None)
Quarter: 2005Q2

REPORT INFORMATION
  Report Type: 
  Country: None (occurrence: None)
  Receive Date: 20050517
  Receipt Date: 20041203
  Transmission Date: 20051028
  Serious: Yes (Other)
  Sender: FDA-Public Use
  Company Number: GB-GLAXOSMITHKLINE-B0361653A

PATIENT
  Sex: Female

DRUGS (11)
  1. PAROXETINE HYDROCHLORIDE [Suspect]
     Route: 065
     Dates: start: 20030901
  2. TEMAZEPAM [Concomitant]
  3. DIAZEPAM [Concomitant]
  4. AMOXICILLIN [Concomitant]
  5. ERYTHROMYCIN [Concomitant]
  6. HEPATITIS A VACCINE [Concomitant]
  7. TYPHOID VACCINE [Concomitant]
  8. MENGIVAC [Concomitant]
  9. LANSOPRAZOLE [Concomitant]
  10. SALBUTAMOL [Concomitant]
  11. GAVISCON [Concomitant]

REACTIONS (12)
  - ANXIETY [None]
  - DEPRESSED MOOD [None]
  - DISABILITY [None]
  - DIZZINESS [None]
  - DRUG WITHDRAWAL SYNDROME [None]
  - HYPERHIDROSIS [None]
  - INSOMNIA [None]
  - PANIC ATTACK [None]
  - PARAESTHESIA [None]
  - PARAESTHESIA ORAL [None]
  - POLYDIPSIA [None]
  - SUICIDAL IDEATION [None]
